FAERS Safety Report 10028836 (Version 3)
Quarter: 2015Q3

REPORT INFORMATION
  Report Type: Spontaneous
  Country: US (occurrence: US)
  Receive Date: 20140321
  Receipt Date: 20150727
  Transmission Date: 20151125
  Serious: Yes (Other)
  Sender: FDA-Public Use
  Company Number: US-SANOFI-AVENTIS-2012SA037905

PATIENT
  Age: 68 Year
  Sex: Male

DRUGS (3)
  1. PLAVIX [Suspect]
     Active Substance: CLOPIDOGREL BISULFATE
     Indication: STENT PLACEMENT
     Route: 048
     Dates: start: 20090101, end: 20110731
  2. ASPIRIN. [Concomitant]
     Active Substance: ASPIRIN
     Dates: start: 1999
  3. COUMADIN [Concomitant]
     Active Substance: WARFARIN SODIUM
     Dates: start: 1999

REACTIONS (4)
  - Gastrointestinal haemorrhage [Recovered/Resolved]
  - Muscle spasms [Unknown]
  - Multiple injuries [Unknown]
  - Anaemia [Unknown]

NARRATIVE: CASE EVENT DATE: 201006
